FAERS Safety Report 4369272-6 (Version None)
Quarter: 2004Q2

REPORT INFORMATION
  Report Type: 
  Country: None (occurrence: None)
  Receive Date: 20040603
  Receipt Date: 20040401
  Transmission Date: 20050107
  Serious: No
  Sender: FDA-Public Use
  Company Number: US-GLAXOSMITHKLINE-A0505575A

PATIENT
  Age: 31 Year
  Sex: Female

DRUGS (3)
  1. AUGMENTIN [Suspect]
     Indication: EAR INFECTION
     Dosage: 2TAB TWICE PER DAY
     Route: 048
     Dates: start: 20040303, end: 20040305
  2. FLONASE [Suspect]
     Indication: ILL-DEFINED DISORDER
     Dosage: 2SPR TWICE PER DAY
     Route: 045
     Dates: start: 20040303
  3. NO CONCURRENT MEDICATION [Concomitant]

REACTIONS (1)
  - DIARRHOEA [None]
